FAERS Safety Report 12614998 (Version 1)
Quarter: 2016Q3

REPORT INFORMATION
  Report Type: Report from Study
  Country: JP (occurrence: JP)
  Receive Date: 20160802
  Receipt Date: 20160802
  Transmission Date: 20161109
  Serious: Yes (Hospitalization)
  Sender: FDA-Public Use
  Company Number: JP-DSJP-DSJ-2016-125904

PATIENT

DRUGS (12)
  1. OLMETEC TABLETS 40MG [Suspect]
     Active Substance: OLMESARTAN MEDOXOMIL
     Indication: PRODUCT USED FOR UNKNOWN INDICATION
     Dosage: 40 MG, QD
     Route: 065
     Dates: start: 20131202
  2. TENELIA TABLETS 20MG [Suspect]
     Active Substance: TENELIGLIPTIN
     Indication: PRODUCT USED FOR UNKNOWN INDICATION
     Dosage: 20 MG, QD
     Route: 048
     Dates: start: 20140326, end: 20160221
  3. FEBURIC [Concomitant]
     Active Substance: FEBUXOSTAT
     Dosage: 20 MG, UNK
     Route: 065
  4. ADALAT [Concomitant]
     Active Substance: NIFEDIPINE
     Dosage: 40 MG, QD
     Route: 048
  5. ATELEC [Concomitant]
     Active Substance: CILNIDIPINE
     Dosage: 20 MG, UNK
     Route: 065
  6. CARDENALIN [Concomitant]
     Active Substance: DOXAZOSIN MESYLATE
     Dosage: 2 MG, UNK
     Route: 065
  7. PRECIPITATED CALCIUM CARBONATE [Concomitant]
     Active Substance: CALCIUM CARBONATE
     Dosage: 3 G, UNK
     Route: 065
  8. FOSRENOL [Concomitant]
     Active Substance: LANTHANUM CARBONATE
     Dosage: 1500 MG, UNK
     Route: 065
  9. GASLON [Concomitant]
     Active Substance: IRSOGLADINE MALEATE
     Dosage: 4 MG, UNK
     Route: 065
  10. ALDOMET [Concomitant]
     Active Substance: METHYLDOPA
     Dosage: 500 MG, UNK
     Route: 065
  11. OMEPRAZOLE. [Concomitant]
     Active Substance: OMEPRAZOLE
     Dosage: 20 MG, UNK
     Route: 065
  12. TAMSULOSIN [Concomitant]
     Active Substance: TAMSULOSIN
     Dosage: 0.2 MG, UNK
     Route: 065

REACTIONS (2)
  - Cholecystitis [Recovered/Resolved]
  - Vitreous haemorrhage [Recovered/Resolved]

NARRATIVE: CASE EVENT DATE: 20151002
